FAERS Safety Report 6446997-X (Version None)
Quarter: 2009Q4

REPORT INFORMATION
  Report Type: 
  Country: None (occurrence: None)
  Receive Date: 20091119
  Receipt Date: 20091116
  Transmission Date: 20100525
  Serious: Yes (Life-Threatening)
  Sender: FDA-Public Use
  Company Number: JP-BRISTOL-MYERS SQUIBB COMPANY-14819833

PATIENT
  Age: 57 Year
  Sex: Male
  Weight: 58 kg

DRUGS (7)
  1. ERBITUX [Suspect]
     Indication: COLON CANCER
     Route: 042
     Dates: start: 20090929, end: 20090929
  2. IRINOTECAN HCL [Suspect]
     Indication: COLON CANCER
     Route: 042
     Dates: start: 20090929, end: 20090929
  3. FLUOROURACIL [Suspect]
     Indication: COLON CANCER
     Dosage: ALSO INTRAVENOUSLY;2400MG/M2
     Route: 040
     Dates: start: 20090929, end: 20090929
  4. LEUCOVORIN CALCIUM [Suspect]
     Indication: COLON CANCER
     Route: 042
     Dates: start: 20090929, end: 20090929
  5. POLARAMINE [Concomitant]
     Indication: PREMEDICATION
     Route: 042
     Dates: start: 20090929, end: 20090929
  6. DECADRON [Concomitant]
     Indication: PREMEDICATION
     Route: 042
     Dates: start: 20090929, end: 20090929
  7. KYTRIL [Concomitant]
     Indication: ANTIEMETIC SUPPORTIVE CARE
     Route: 042
     Dates: start: 20090929, end: 20090929

REACTIONS (1)
  - DIARRHOEA [None]
